FAERS Safety Report 5764954-3 (Version None)
Quarter: 2008Q2

REPORT INFORMATION
  Report Type: 
  Country: None (occurrence: None)
  Receive Date: 20080611
  Receipt Date: 20080603
  Transmission Date: 20081010
  Serious: Yes (Hospitalization)
  Sender: FDA-Public Use
  Company Number: B0523263A

PATIENT
  Sex: Male

DRUGS (4)
  1. FLIXONASE [Suspect]
     Dosage: 400MCG SEE DOSAGE TEXT
     Route: 045
     Dates: start: 20010301, end: 20080324
  2. FLIXOTIDE [Concomitant]
     Dosage: 250MCG TWICE PER DAY
     Route: 055
     Dates: start: 19990101
  3. DIOVAN [Concomitant]
     Dosage: 80MG PER DAY
     Route: 048
     Dates: start: 19990101
  4. PREDNISON [Concomitant]
     Route: 048
     Dates: start: 20080301

REACTIONS (1)
  - EPISTAXIS [None]
